FAERS Safety Report 7284554-6 (Version None)
Quarter: 2011Q1

REPORT INFORMATION
  Report Type: 
  Country: None (occurrence: None)
  Receive Date: 20110210
  Receipt Date: 20101221
  Transmission Date: 20110831
  Serious: Yes (Other)
  Sender: FDA-Public Use
  Company Number: DE-BAYER-201047745GPV

PATIENT
  Sex: Male

DRUGS (4)
  1. VIAGRA [Concomitant]
     Indication: ERECTILE DYSFUNCTION
     Dosage: 25 MG, UNK
     Route: 048
     Dates: start: 20101117, end: 20101117
  2. LEVITRA [Suspect]
     Dosage: 20 MG, BID
     Dates: start: 20101209, end: 20101209
  3. VIAGRA [Concomitant]
     Dosage: 25 MG, UNK
     Dates: start: 20101123, end: 20101123
  4. LEVITRA [Suspect]
     Indication: ERECTILE DYSFUNCTION
     Dosage: HALF A TABLET IN THE AFTERNOON AS TEST DOSIS
     Route: 048
     Dates: start: 20101111, end: 20101111

REACTIONS (7)
  - ERECTILE DYSFUNCTION [None]
  - VOMITING [None]
  - ABDOMINAL DISCOMFORT [None]
  - THROAT IRRITATION [None]
  - CHEMICAL BURN OF RESPIRATORY TRACT [None]
  - DYSPHONIA [None]
  - GENITAL PAIN [None]
